FAERS Safety Report 7433319-0 (Version None)
Quarter: 2011Q2

REPORT INFORMATION
  Report Type: 
  Country: None (occurrence: None)
  Receive Date: 20110422
  Receipt Date: 20110412
  Transmission Date: 20111010
  Serious: Yes (Hospitalization, Other)
  Sender: FDA-Public Use
  Company Number: US-ELI_LILLY_AND_COMPANY-US201010005980

PATIENT
  Sex: Female

DRUGS (9)
  1. FORTEO [Suspect]
     Indication: OSTEOPOROSIS
     Dosage: 20 UG, DAILY (1/D)
     Route: 065
  2. ANTIBIOTICS [Concomitant]
  3. ALDACTONE [Concomitant]
     Dosage: 25 MG, QD
  4. IMURAN [Concomitant]
     Dosage: 50 MG, QD
  5. CALTRATE + D [Concomitant]
     Dosage: UNK, BID
  6. POTASSIUM [Concomitant]
     Dosage: 20 MEQ, BID
  7. FORTEO [Suspect]
     Dosage: 20 UG, DAILY (1/D)
  8. PREDNISONE [Concomitant]
     Dosage: 10 MG, QD
  9. METOPROLOL [Concomitant]
     Dosage: 50 MG, DAILY (1/D)

REACTIONS (8)
  - GASTROENTERITIS [None]
  - ASPARTATE AMINOTRANSFERASE INCREASED [None]
  - BLOOD ALKALINE PHOSPHATASE INCREASED [None]
  - HEPATITIS VIRAL [None]
  - ECZEMA [None]
  - ALANINE AMINOTRANSFERASE INCREASED [None]
  - ALOPECIA [None]
  - NASOPHARYNGITIS [None]
